FAERS Safety Report 4752218-6 (Version None)
Quarter: 2005Q3

REPORT INFORMATION
  Report Type: 
  Country: None (occurrence: None)
  Receive Date: 20050825
  Receipt Date: 20050819
  Transmission Date: 20060218
  Serious: Yes (Other)
  Sender: FDA-Public Use
  Company Number: 200512400JP

PATIENT
  Age: 63 Year
  Sex: Male

DRUGS (10)
  1. RILUTEK [Suspect]
     Indication: AMYOTROPHIC LATERAL SCLEROSIS
     Route: 048
     Dates: start: 20050314, end: 20050614
  2. COMESGEN [Concomitant]
     Indication: NERVOUS SYSTEM DISORDER
     Route: 048
     Dates: start: 20050107
  3. COMESGEN [Concomitant]
     Indication: PROPHYLAXIS
     Route: 048
     Dates: start: 20050107
  4. SOLANTAL [Concomitant]
     Indication: ANALGESIC THERAPY
     Dosage: DOSE: 3 TABLETS A DAY
     Route: 048
     Dates: start: 20050225, end: 20050314
  5. SELBEX [Concomitant]
     Indication: GASTRIC DISORDER
     Route: 048
     Dates: start: 20050225
  6. SELBEX [Concomitant]
     Indication: PROPHYLAXIS
     Route: 048
     Dates: start: 20050225
  7. NAUZART [Concomitant]
     Indication: DECREASED APPETITE
     Dosage: DOSE: 2 TABLETS A DAY
     Route: 048
     Dates: start: 20050420, end: 20050425
  8. NAUZART [Concomitant]
     Indication: NAUSEA
     Dosage: DOSE: 2 TABLETS A DAY
     Route: 048
     Dates: start: 20050420, end: 20050425
  9. GASTER [Concomitant]
     Indication: DECREASED APPETITE
     Dosage: DOSE: 2 TABLETS A DAY
     Route: 048
     Dates: start: 20050420, end: 20050425
  10. GASTER [Concomitant]
     Indication: NAUSEA
     Dosage: DOSE: 2 TABLETS A DAY
     Route: 048
     Dates: start: 20050420, end: 20050425

REACTIONS (5)
  - COUGH [None]
  - DYSPNOEA [None]
  - INFLAMMATION [None]
  - LUNG INFILTRATION [None]
  - PYREXIA [None]
